FAERS Safety Report 4844100-0 (Version None)
Quarter: 2005Q4

REPORT INFORMATION
  Report Type: 
  Country: None (occurrence: None)
  Receive Date: 20051202
  Receipt Date: 20041102
  Transmission Date: 20060501
  Serious: Yes (Hospitalization, Disabling)
  Sender: FDA-Public Use
  Company Number: US-ROCHE-385239

PATIENT
  Age: 20 Year
  Sex: Female

DRUGS (2)
  1. ACCUTANE [Suspect]
     Indication: ACNE
     Route: 048
     Dates: start: 19980615, end: 19981015
  2. BIRTH CONTROL PILLS NOS [Concomitant]
     Dosage: FREQENCY REPORTED AS EVERY DAY
     Route: 048

REACTIONS (64)
  - ABDOMINAL PAIN [None]
  - ABSCESS [None]
  - ACNE [None]
  - ALANINE AMINOTRANSFERASE INCREASED [None]
  - ANAL SKIN TAGS [None]
  - ANOREXIA [None]
  - ARTHRALGIA [None]
  - BLOOD ALBUMIN DECREASED [None]
  - BLOOD ALKALINE PHOSPHATASE INCREASED [None]
  - BREAST CYST [None]
  - CAESAREAN SECTION [None]
  - CANDIDIASIS [None]
  - CERVIX CARCINOMA STAGE 0 [None]
  - COLITIS [None]
  - COLITIS ULCERATIVE [None]
  - CONDITION AGGRAVATED [None]
  - CONJUNCTIVITIS [None]
  - CROHN'S DISEASE [None]
  - CULTURE WOUND POSITIVE [None]
  - DEPRESSION [None]
  - DRUG INEFFECTIVE [None]
  - DYSPEPSIA [None]
  - ENDOMETRIAL ATROPHY [None]
  - ENTEROCOCCAL INFECTION [None]
  - ENTEROCOLITIS INFECTIOUS [None]
  - EXCESSIVE GRANULATION TISSUE [None]
  - FATIGUE [None]
  - FUNGAL INFECTION [None]
  - GASTROINTESTINAL DISORDER [None]
  - HEADACHE [None]
  - HYDRONEPHROSIS [None]
  - HYPERHIDROSIS [None]
  - IMPAIRED HEALING [None]
  - INFECTED SEBACEOUS CYST [None]
  - INFLAMMATORY BOWEL DISEASE [None]
  - INSOMNIA [None]
  - INTESTINAL HAEMORRHAGE [None]
  - IRON DEFICIENCY ANAEMIA [None]
  - LIPASE INCREASED [None]
  - MULTI-ORGAN DISORDER [None]
  - MULTIPLE ALLERGIES [None]
  - NAUSEA [None]
  - PAIN [None]
  - PELVIC ABSCESS [None]
  - PREGNANCY [None]
  - PYELONEPHRITIS [None]
  - RECTAL HAEMORRHAGE [None]
  - SEROMA [None]
  - SERUM SICKNESS [None]
  - SINUS CONGESTION [None]
  - SINUS HEADACHE [None]
  - SMALL INTESTINAL OBSTRUCTION [None]
  - STAPHYLOCOCCAL INFECTION [None]
  - STRESS [None]
  - SUICIDAL IDEATION [None]
  - SYNCOPE [None]
  - URINARY TRACT INFECTION [None]
  - VAGINAL HAEMORRHAGE [None]
  - VISUAL DISTURBANCE [None]
  - VOMITING [None]
  - WEIGHT DECREASED [None]
  - WEIGHT INCREASED [None]
  - WOUND [None]
  - WOUND INFECTION [None]
